FAERS Safety Report 8591322-1 (Version None)
Quarter: 2012Q3

REPORT INFORMATION
  Report Type: 
  Country: None (occurrence: None)
  Receive Date: 20120731
  Receipt Date: 20120717
  Transmission Date: 20120928
  Serious: Yes (Death)
  Sender: FDA-Public Use
  Company Number: GER/ITL/12/0025062

PATIENT
  Age: 64 Year
  Sex: Male

DRUGS (17)
  1. ATORVASTATIN CALCIUM [Concomitant]
  2. KANRENOL (POTASSIUM CANRENOATE) [Concomitant]
  3. LANSOPRAZOLE [Concomitant]
  4. LANSOPRAZOLE [Concomitant]
  5. METOPROLOL TARTRATE [Concomitant]
  6. BISOPROLOL FUMARATE [Concomitant]
  7. SIMVASTATIN [Concomitant]
  8. CLOPIDOGREL [Suspect]
     Indication: ELECTROCARDIOGRAM ST SEGMENT ELEVATION
     Dosage: 75 MG, 1 IN 1 D, ORAL
     Route: 048
     Dates: start: 20120602, end: 20120708
  9. PIPERACILLIN AND TAZOBACTAM [Concomitant]
  10. ASPIRIN [Concomitant]
  11. CIPROFLOXACIN [Concomitant]
  12. ALLOPURINOL [Concomitant]
  13. LEVOTHYROXINE SODIUM [Concomitant]
  14. METFFORMIN HYDROCHLORIDE [Concomitant]
  15. FUROSEMIDE [Concomitant]
  16. RAMIPRIL [Concomitant]
  17. CARDIOSAPIRIN (ACETYLSALICYLIC ACID) [Concomitant]

REACTIONS (5)
  - ACUTE PULMONARY OEDEMA [None]
  - THROMBOSIS IN DEVICE [None]
  - ACUTE CORONARY SYNDROME [None]
  - CARDIOGENIC SHOCK [None]
  - CARDIO-RESPIRATORY ARREST [None]
